FAERS Safety Report 12609606 (Version 2)
Quarter: 2016Q3

REPORT INFORMATION
  Report Type: Spontaneous
  Country: US (occurrence: US)
  Receive Date: 20160801
  Receipt Date: 20160930
  Transmission Date: 20161109
  Serious: No
  Sender: FDA-Public Use
  Company Number: US-ASTRAZENECA-2016SE79787

PATIENT
  Sex: Male
  Weight: 81.6 kg

DRUGS (2)
  1. TUDORZA PRESSAIR [Suspect]
     Active Substance: ACLIDINIUM BROMIDE
     Indication: CHRONIC OBSTRUCTIVE PULMONARY DISEASE
     Route: 055
  2. ALBUTEROL/VENTOLIN HFA INHALER [Concomitant]
     Indication: CHRONIC OBSTRUCTIVE PULMONARY DISEASE
     Dosage: 90.0UG AS REQUIRED
     Route: 055

REACTIONS (6)
  - Underdose [Unknown]
  - Circumstance or information capable of leading to medication error [Unknown]
  - Dyspnoea [Unknown]
  - Device issue [Unknown]
  - Device malfunction [Unknown]
  - Device failure [Unknown]
